FAERS Safety Report 21334643 (Version 1)
Quarter: 2022Q3

REPORT INFORMATION
  Report Type: Spontaneous
  Country: US (occurrence: US)
  Receive Date: 20220914
  Receipt Date: 20220914
  Transmission Date: 20221027
  Serious: No
  Sender: FDA-Public Use
  Company Number: US-ELI_LILLY_AND_COMPANY-US202209005044

PATIENT
  Sex: Male

DRUGS (2)
  1. TRULICITY [Suspect]
     Active Substance: DULAGLUTIDE
     Indication: Weight decreased
     Dosage: UNK UNK, UNKNOWN (HIGHER DOSE)
     Route: 065
  2. TRULICITY [Suspect]
     Active Substance: DULAGLUTIDE
     Dosage: UNK UNK, UNKNOWN (LOWER DOSE)
     Route: 065

REACTIONS (8)
  - Headache [Unknown]
  - Mood swings [Unknown]
  - Starvation [Unknown]
  - Pain [Unknown]
  - Restlessness [Unknown]
  - Off label use [Unknown]
  - Diarrhoea [Unknown]
  - Decreased appetite [Unknown]
